FAERS Safety Report 7435246-1 (Version None)
Quarter: 2011Q2

REPORT INFORMATION
  Report Type: 
  Country: None (occurrence: None)
  Receive Date: 20110425
  Receipt Date: 20110414
  Transmission Date: 20111010
  Serious: Yes (Hospitalization)
  Sender: FDA-Public Use
  Company Number: JP-ASTRAZENECA-2011SE02849

PATIENT
  Sex: Female
  Weight: 67 kg

DRUGS (5)
  1. CRESTOR [Suspect]
     Indication: HYPERCHOLESTEROLAEMIA
     Route: 048
     Dates: start: 20081212, end: 20110107
  2. COMELIAN [Concomitant]
     Route: 048
     Dates: end: 20110107
  3. PREDONINE [Concomitant]
     Route: 048
     Dates: end: 20110107
  4. THYRADIN [Concomitant]
     Route: 048
     Dates: end: 20110107
  5. ALLOPURINOL [Concomitant]
     Route: 048
     Dates: end: 20110107

REACTIONS (1)
  - BLOOD CREATINE PHOSPHOKINASE INCREASED [None]
